FAERS Safety Report 10442477 (Version 1)
Quarter: 2014Q3

REPORT INFORMATION
  Report Type: Spontaneous
  Country: US (occurrence: None)
  Receive Date: 20140908
  Receipt Date: 20140908
  Transmission Date: 20150326
  Serious: Yes (Hospitalization)
  Sender: FDA-Public Use
  Company Number: 2014AP004469

PATIENT
  Age: 16 Year
  Sex: Female

DRUGS (3)
  1. LACOSAMIDE [Suspect]
     Active Substance: LACOSAMIDE
     Indication: INTENTIONAL SELF-INJURY
     Route: 048
  2. LEVETIRACETAM. [Suspect]
     Active Substance: LEVETIRACETAM
     Indication: INTENTIONAL SELF-INJURY
     Route: 048
  3. CYCLOBENZAPRINE [Suspect]
     Active Substance: CYCLOBENZAPRINE
     Indication: INTENTIONAL SELF-INJURY
     Route: 048

REACTIONS (5)
  - Intentional self-injury [None]
  - Intentional overdose [None]
  - Electrocardiogram QRS complex prolonged [None]
  - Sinus tachycardia [None]
  - Cardiac arrest [None]
